FAERS Safety Report 7067298-5 (Version None)
Quarter: 2010Q4

REPORT INFORMATION
  Report Type: 
  Country: None (occurrence: None)
  Receive Date: 20101022
  Receipt Date: 20101022
  Transmission Date: 20110411
  Serious: Yes (Life-Threatening, Hospitalization)
  Sender: FDA-Public Use
  Company Number: None

PATIENT
  Sex: Male
  Weight: 65.9 kg

DRUGS (1)
  1. FERAHEME [Suspect]
     Indication: POLYCYTHAEMIA
     Dosage: 510MG ONCE INTRAVENOUS
     Route: 042
     Dates: start: 20101019

REACTIONS (1)
  - RESUSCITATION [None]
